FAERS Safety Report 5041812-3 (Version None)
Quarter: 2006Q2

REPORT INFORMATION
  Report Type: 
  Country: None (occurrence: None)
  Receive Date: 20060630
  Receipt Date: 20060622
  Transmission Date: 20061013
  Serious: Yes (Other)
  Sender: FDA-Public Use
  Company Number: 226546

PATIENT
  Age: 14 Year
  Sex: Female
  Weight: 67.3 kg

DRUGS (1)
  1. NUTROPIN AQ [Suspect]
     Indication: PRADER-WILLI SYNDROME
     Dosage: 2 MG, 7/WEEK, SUBCUTANEOUS
     Route: 058
     Dates: start: 19990106

REACTIONS (12)
  - APHASIA [None]
  - BLOOD PRESSURE DIASTOLIC DECREASED [None]
  - CLAVICLE FRACTURE [None]
  - EYE ROLLING [None]
  - EYELID DISORDER [None]
  - FALL [None]
  - FEELING ABNORMAL [None]
  - HEAD INJURY [None]
  - LOSS OF CONSCIOUSNESS [None]
  - SLEEP DISORDER [None]
  - SOMNOLENCE [None]
  - VERTIGO [None]
